FAERS Safety Report 7112677-0 (Version None)
Quarter: 2010Q4

REPORT INFORMATION
  Report Type: 
  Country: None (occurrence: None)
  Receive Date: 20101119
  Receipt Date: 20101108
  Transmission Date: 20110411
  Serious: Yes (Other)
  Sender: FDA-Public Use
  Company Number: PHFR2010GB01648

PATIENT
  Sex: Male
  Weight: 103 kg

DRUGS (2)
  1. CLOZARIL [Suspect]
     Indication: SCHIZOPHRENIA
     Dosage: 425 MG/DAY
     Route: 048
     Dates: start: 20050605
  2. DEPAKOTE [Suspect]
     Indication: AFFECTIVE DISORDER
     Dosage: 500 MG, BID
     Route: 048

REACTIONS (3)
  - GINGIVAL BLEEDING [None]
  - PLATELET COUNT DECREASED [None]
  - THROMBOCYTOPENIA [None]
